FAERS Safety Report 19278346 (Version 1)
Quarter: 2021Q2

REPORT INFORMATION
  Report Type: Spontaneous
  Country: US (occurrence: US)
  Receive Date: 20210520
  Receipt Date: 20210520
  Transmission Date: 20210717
  Serious: Yes (Hospitalization, Other)
  Sender: FDA-Public Use
  Company Number: None

PATIENT
  Age: 64 Year
  Sex: Female
  Weight: 80.1 kg

DRUGS (5)
  1. PROPRANOLOL [Concomitant]
     Active Substance: PROPRANOLOL HYDROCHLORIDE
  2. ATORVASTATIN [Concomitant]
     Active Substance: ATORVASTATIN
  3. XOLAIR [Suspect]
     Active Substance: OMALIZUMAB
     Indication: CHRONIC SPONTANEOUS URTICARIA
     Dosage: ?          QUANTITY:2 INJECTION(S);OTHER FREQUENCY:MONTHO;?
     Route: 030
  4. ZYRTEC [Concomitant]
     Active Substance: CETIRIZINE HYDROCHLORIDE
  5. FISH OIL [Concomitant]
     Active Substance: FISH OIL

REACTIONS (15)
  - Heart rate irregular [None]
  - Chest pain [None]
  - Headache [None]
  - Paraesthesia oral [None]
  - Therapeutic response shortened [None]
  - Hypertension [None]
  - Blood pressure inadequately controlled [None]
  - Blood pressure increased [None]
  - Chest discomfort [None]
  - Hypoaesthesia [None]
  - Paraesthesia [None]
  - Condition aggravated [None]
  - Feeling abnormal [None]
  - Vision blurred [None]
  - Product taste abnormal [None]

NARRATIVE: CASE EVENT DATE: 20210406
